FAERS Safety Report 16761651 (Version 1)
Quarter: 2019Q3

REPORT INFORMATION
  Report Type: Spontaneous
  Country: JP (occurrence: JP)
  Receive Date: 20190830
  Receipt Date: 20190830
  Transmission Date: 20191005
  Serious: Yes (Other)
  Sender: FDA-Public Use
  Company Number: PHJP2019JP010905

PATIENT
  Sex: Male

DRUGS (1)
  1. AZORGA COMBINATION OPHTHALMIC SUSPENSION [Suspect]
     Active Substance: BRINZOLAMIDE\TIMOLOL MALEATE
     Indication: PROPHYLAXIS
     Route: 047
     Dates: start: 201807, end: 20181115

REACTIONS (3)
  - Blood pressure increased [Recovering/Resolving]
  - Intraocular pressure increased [Unknown]
  - Visual acuity reduced [Unknown]
